FAERS Safety Report 8387268-4 (Version None)
Quarter: 2012Q2

REPORT INFORMATION
  Report Type: 
  Country: None (occurrence: None)
  Receive Date: 20120525
  Receipt Date: 20120515
  Transmission Date: 20120825
  Serious: Yes (Hospitalization)
  Sender: FDA-Public Use
  Company Number: AR-TEVA-323928ISR

PATIENT
  Sex: Female

DRUGS (7)
  1. FOLIC ACID [Concomitant]
     Dosage: 5 MILLIGRAM;
     Dates: start: 20090701
  2. LEFLUNOMIDE [Suspect]
     Indication: RHEUMATOID ARTHRITIS
     Dosage: 20 MILLIGRAM;
     Route: 048
     Dates: start: 20111029, end: 20120207
  3. METHOTREXATE [Concomitant]
     Dosage: 2.1429 MILLIGRAM;
     Route: 048
     Dates: start: 20090701, end: 20111101
  4. CHOLESTYRAMINA (BRAND NAME NOT SPECIFIED) [Concomitant]
     Route: 048
     Dates: start: 20120209, end: 20120219
  5. PREDNISONE TAB [Concomitant]
     Dosage: 10 MILLIGRAM;
     Route: 048
  6. PANTOPRAZOLE [Concomitant]
     Dosage: 20 MILLIGRAM;
     Dates: start: 20100101
  7. HYDROXYCHLOROQUINE SULFATE [Concomitant]
     Dosage: 300 MILLIGRAM;
     Route: 048
     Dates: start: 20050101

REACTIONS (3)
  - METRORRHAGIA [None]
  - PREGNANCY [None]
  - ABORTION SPONTANEOUS [None]
